FAERS Safety Report 16910412 (Version 3)
Quarter: 2019Q4

REPORT INFORMATION
  Report Type: Spontaneous
  Country: BR (occurrence: BR)
  Receive Date: 20191011
  Receipt Date: 20191016
  Transmission Date: 20200122
  Serious: Yes (Death, Hospitalization)
  Sender: FDA-Public Use
  Company Number: BR-BIOMARINAP-BR-2019-126265

PATIENT

DRUGS (1)
  1. NAGLAZYME [Suspect]
     Active Substance: GALSULFASE
     Indication: MUCOPOLYSACCHARIDOSIS VI
     Dosage: 1 MILLIGRAM/KILOGRAM, QW
     Route: 042
     Dates: start: 20181213

REACTIONS (7)
  - Sepsis [Fatal]
  - Depressed level of consciousness [Unknown]
  - Respiratory failure [Unknown]
  - Atypical pneumonia [Unknown]
  - Unresponsive to stimuli [Unknown]
  - General physical health deterioration [Unknown]
  - Productive cough [Unknown]

NARRATIVE: CASE EVENT DATE: 20191010
